FAERS Safety Report 16849234 (Version 1)
Quarter: 2019Q3

REPORT INFORMATION
  Report Type: Spontaneous
  Country: US (occurrence: US)
  Receive Date: 20190925
  Receipt Date: 20190925
  Transmission Date: 20191005
  Serious: Yes (Other)
  Sender: FDA-Public Use
  Company Number: US-DRREDDYS-USA/USA/19/0114452

PATIENT
  Sex: Male
  Weight: 117 kg

DRUGS (1)
  1. PREGABALIN. [Suspect]
     Active Substance: PREGABALIN
     Indication: NEURALGIA
     Route: 048
     Dates: end: 20190917

REACTIONS (8)
  - Eye swelling [Unknown]
  - Drug ineffective [Unknown]
  - Dysphagia [Unknown]
  - Chest pain [Unknown]
  - Somnolence [Unknown]
  - Product quality issue [Unknown]
  - Swelling face [Unknown]
  - Product substitution issue [Unknown]
